FAERS Safety Report 6404370-4 (Version None)
Quarter: 2009Q4

REPORT INFORMATION
  Report Type: 
  Country: None (occurrence: None)
  Receive Date: 20091016
  Receipt Date: 20091005
  Transmission Date: 20100525
  Serious: Yes (Other)
  Sender: FDA-Public Use
  Company Number: US-MYLANLABS-2007S1004602

PATIENT
  Age: 61 Year
  Sex: Female
  Weight: 55.79 kg

DRUGS (4)
  1. NITROFURANTOIN MONOHYDRATE/MACROCRYSTALS CAPSULES [Suspect]
     Indication: URINARY TRACT INFECTION
     Route: 048
     Dates: start: 20070519, end: 20070519
  2. PROTONIX /01263201/ [Concomitant]
  3. LIPITOR [Concomitant]
  4. SYNTHROID [Concomitant]

REACTIONS (10)
  - ABDOMINAL PAIN UPPER [None]
  - CHEST DISCOMFORT [None]
  - CHILLS [None]
  - COUGH [None]
  - DYSGEUSIA [None]
  - NAUSEA [None]
  - OROPHARYNGEAL PAIN [None]
  - PAROSMIA [None]
  - PYREXIA [None]
  - VOMITING [None]
